FAERS Safety Report 12435513 (Version 1)
Quarter: 2016Q2

REPORT INFORMATION
  Report Type: Spontaneous
  Country: US (occurrence: US)
  Receive Date: 20160603
  Receipt Date: 20160603
  Transmission Date: 20160815
  Serious: No
  Sender: FDA-Public Use
  Company Number: US-ROCHE-1716813

PATIENT
  Age: 64 Year
  Sex: Male
  Weight: 66.28 kg

DRUGS (5)
  1. LEFLUNOMIDE. [Concomitant]
     Active Substance: LEFLUNOMIDE
  2. IBUPROFEN. [Concomitant]
     Active Substance: IBUPROFEN
  3. ACTEMRA [Suspect]
     Active Substance: TOCILIZUMAB
     Indication: RHEUMATOID ARTHRITIS
     Route: 058
     Dates: start: 20150215
  4. LYRICA [Concomitant]
     Active Substance: PREGABALIN
  5. NORCO [Concomitant]
     Active Substance: ACETAMINOPHEN\HYDROCODONE BITARTRATE

REACTIONS (5)
  - Pain in extremity [Unknown]
  - Headache [Recovering/Resolving]
  - Rash [Recovering/Resolving]
  - Rheumatoid arthritis [Recovering/Resolving]
  - Peripheral swelling [Unknown]

NARRATIVE: CASE EVENT DATE: 20160201
